FAERS Safety Report 24262482 (Version 1)
Quarter: 2024Q3

REPORT INFORMATION
  Report Type: Spontaneous
  Country: US (occurrence: US)
  Receive Date: 20240829
  Receipt Date: 20240829
  Transmission Date: 20241016
  Serious: No
  Sender: BOSTON SCIENTIFIC
  Company Number: US-BSC-2024000075

PATIENT
  Sex: Female

DRUGS (1)
  1. VARITHENA [Suspect]
     Active Substance: POLIDOCANOL
     Indication: Product used for unknown indication
     Dates: start: 20240126

REACTIONS (6)
  - Gait disturbance [Unknown]
  - Joint swelling [Unknown]
  - Trigger points [Unknown]
  - Rash [Unknown]
  - Pyrexia [Recovered/Resolved]
  - Pain [Unknown]
